FAERS Safety Report 5123867-0 (Version None)
Quarter: 2006Q4

REPORT INFORMATION
  Report Type: 
  Country: None (occurrence: None)
  Receive Date: 20061010
  Receipt Date: 20061003
  Transmission Date: 20070319
  Serious: Yes (Hospitalization)
  Sender: FDA-Public Use
  Company Number: FR-GLAXOSMITHKLINE-B0441241A

PATIENT
  Age: 85 Year
  Sex: Female

DRUGS (7)
  1. AUGMENTIN '125' [Suspect]
     Indication: SEPSIS
     Dosage: 1G THREE TIMES PER DAY
     Route: 042
     Dates: start: 20060921
  2. ADRENALINE [Concomitant]
     Route: 065
     Dates: start: 20060921
  3. HEMOFILTRATION [Concomitant]
     Dates: start: 20060922
  4. VIT K [Concomitant]
     Indication: INTERNATIONAL NORMALISED RATIO ABNORMAL
     Route: 065
  5. ORBENIN CAP [Concomitant]
     Dosage: 1G TWICE PER DAY
     Route: 065
  6. GENTAMICIN [Concomitant]
     Dosage: 1UNIT PER DAY
     Route: 065
     Dates: start: 20060921, end: 20060923
  7. HEMODIALYSIS [Concomitant]
     Dates: start: 20060922

REACTIONS (7)
  - ALANINE AMINOTRANSFERASE INCREASED [None]
  - ASPARTATE AMINOTRANSFERASE INCREASED [None]
  - BLOOD ALKALINE PHOSPHATASE INCREASED [None]
  - BLOOD BILIRUBIN INCREASED [None]
  - GAMMA-GLUTAMYLTRANSFERASE INCREASED [None]
  - HAEMODIALYSIS [None]
  - HEPATIC ENZYME INCREASED [None]
